FAERS Safety Report 22620460 (Version 1)
Quarter: 2023Q2

REPORT INFORMATION
  Report Type: Spontaneous
  Country: FR (occurrence: FR)
  Receive Date: 20230620
  Receipt Date: 20230620
  Transmission Date: 20230722
  Serious: Yes (Other)
  Sender: FDA-Public Use
  Company Number: FR-SEBELA IRELAND LIMITED-2023SEB00040

PATIENT
  Age: 34 Year
  Sex: Female

DRUGS (7)
  1. AZATHIOPRINE [Suspect]
     Active Substance: AZATHIOPRINE
     Indication: Systemic lupus erythematosus
     Dosage: 125 MG, 1X/DAY
  2. AZATHIOPRINE [Suspect]
     Active Substance: AZATHIOPRINE
     Dosage: 150 MG, 1X/DAY
  3. HYDROXYCHLOROQUINE [Concomitant]
     Active Substance: HYDROXYCHLOROQUINE
     Indication: Systemic lupus erythematosus
     Dosage: 400 MG, 1X/DAY
  4. PREDNISONE [Concomitant]
     Active Substance: PREDNISONE
     Indication: Systemic lupus erythematosus
     Dosage: 5 MG, 1X/DAY
  5. PREDNISONE [Concomitant]
     Active Substance: PREDNISONE
     Dosage: 8 MG, 1X/DAY
  6. FLUINDIONE [Concomitant]
     Active Substance: FLUINDIONE
     Indication: Antiphospholipid syndrome
  7. RAMIPRIL [Concomitant]
     Active Substance: RAMIPRIL
     Indication: Renal disorder prophylaxis

REACTIONS (1)
  - Vanishing bile duct syndrome [Recovered/Resolved]
